FAERS Safety Report 7947266-9 (Version None)
Quarter: 2011Q4

REPORT INFORMATION
  Report Type: 
  Country: None (occurrence: None)
  Receive Date: 20111129
  Receipt Date: 20111125
  Transmission Date: 20120403
  Serious: Yes (Other)
  Sender: FDA-Public Use
  Company Number: DK-ASTRAZENECA-2011SE71739

PATIENT
  Age: 29 Year
  Sex: Female
  Weight: 55 kg

DRUGS (2)
  1. FLUOXETINE HCL [Suspect]
     Indication: DEPRESSION
     Route: 048
     Dates: start: 20101015
  2. SEROQUEL [Suspect]
     Indication: DEPRESSION
     Route: 048
     Dates: start: 20101015

REACTIONS (2)
  - ABORTION MISSED [None]
  - MATERNAL EXPOSURE DURING PREGNANCY [None]
